FAERS Safety Report 6305247-5 (Version None)
Quarter: 2009Q3

REPORT INFORMATION
  Report Type: 
  Country: None (occurrence: None)
  Receive Date: 20090807
  Receipt Date: 20090729
  Transmission Date: 20100115
  Serious: Yes (Other)
  Sender: FDA-Public Use
  Company Number: 2009AL005029

PATIENT
  Age: 51 Year
  Sex: Female

DRUGS (1)
  1. PHENOBARBITAL ELIXER USP (ALPHARMA) (PHENOBARBITAL ELIXIR USP (ALPHARM [Suspect]
     Indication: EPILEPSY
     Dosage: ; QD;

REACTIONS (4)
  - ANXIETY [None]
  - DYSKINESIA [None]
  - RASH [None]
  - SUICIDAL IDEATION [None]
